FAERS Safety Report 13343053 (Version 1)
Quarter: 2017Q1

REPORT INFORMATION
  Report Type: Spontaneous
  Country: US (occurrence: US)
  Receive Date: 20170316
  Receipt Date: 20170316
  Transmission Date: 20170428
  Serious: Yes (Other)
  Sender: FDA-Public Use
  Company Number: US-ASTRAZENECA-2017SE27247

PATIENT
  Sex: Female

DRUGS (2)
  1. FASLODEX [Suspect]
     Active Substance: FULVESTRANT
     Dosage: STRENGTH AND DOSING UNKNOWN
     Route: 030
  2. FASLODEX [Suspect]
     Active Substance: FULVESTRANT
     Dosage: STRENGTH AND DOSING UNKNOWN
     Route: 030
     Dates: start: 20170214

REACTIONS (3)
  - Injection site pain [Unknown]
  - Decubitus ulcer [Unknown]
  - Breast cancer metastatic [Unknown]
